FAERS Safety Report 5320338-3 (Version None)
Quarter: 2007Q2

REPORT INFORMATION
  Report Type: 
  Country: None (occurrence: None)
  Receive Date: 20070509
  Receipt Date: 20070427
  Transmission Date: 20071010
  Serious: Yes (Disabling)
  Sender: FDA-Public Use
  Company Number: GB-ELI_LILLY_AND_COMPANY-GB200703006248

PATIENT
  Age: 44 Year
  Sex: Male

DRUGS (2)
  1. PROZAC [Suspect]
     Indication: DEPRESSION
     Dosage: 20 MG, UNK
     Route: 048
     Dates: start: 19990326, end: 19990831
  2. PROZAC [Suspect]
     Dosage: 20 MG, UNK
     Route: 048
     Dates: start: 19991116, end: 20000811

REACTIONS (2)
  - FLAT AFFECT [None]
  - SEXUAL DYSFUNCTION [None]
